FAERS Safety Report 9613313 (Version 1)
Quarter: 2013Q4

REPORT INFORMATION
  Report Type: Spontaneous
  Country: ES (occurrence: ES)
  Receive Date: 20131010
  Receipt Date: 20131010
  Transmission Date: 20140711
  Serious: Yes (Hospitalization)
  Sender: FDA-Public Use
  Company Number: ES-BRISTOL-MYERS SQUIBB COMPANY-19360742

PATIENT
  Age: 80 Year
  Sex: Male
  Weight: 71 kg

DRUGS (2)
  1. ERBITUX SOLN FOR INF 5MG/ML [Suspect]
     Indication: ADENOCARCINOMA OF COLON
     Dosage: 5MG/ML
     Route: 042
     Dates: start: 20130531, end: 2013
  2. IRINOTECAN [Suspect]
     Indication: ADENOCARCINOMA OF COLON
     Route: 042
     Dates: start: 20130531

REACTIONS (3)
  - Hypokalaemia [Recovered/Resolved]
  - Metabolic acidosis [Recovered/Resolved]
  - Diarrhoea [Recovered/Resolved]
